FAERS Safety Report 23990690 (Version 1)
Quarter: 2024Q2

REPORT INFORMATION
  Report Type: Spontaneous
  Country: FR (occurrence: FR)
  Receive Date: 20240619
  Receipt Date: 20240619
  Transmission Date: 20240716
  Serious: Yes (Other)
  Sender: FDA-Public Use
  Company Number: None

PATIENT
  Age: 66 Year
  Sex: Female

DRUGS (1)
  1. OPTIRAY 350 [Suspect]
     Active Substance: IOVERSOL
     Indication: Computerised tomogram
     Dosage: 75 ML INJECTED AT 2.5 CC/S
     Route: 042
     Dates: start: 20240311, end: 20240311

REACTIONS (2)
  - Urticaria [Recovered/Resolved]
  - Pharyngeal paraesthesia [Recovered/Resolved]

NARRATIVE: CASE EVENT DATE: 20240311
